FAERS Safety Report 13594547 (Version 3)
Quarter: 2018Q1

REPORT INFORMATION
  Report Type: Spontaneous
  Country: IE (occurrence: IE)
  Receive Date: 20170530
  Receipt Date: 20180323
  Transmission Date: 20180508
  Serious: Yes (Disabling, Congenital Anomaly, Other)
  Sender: FDA-Public Use
  Company Number: IE-ABBVIE-17P-229-1991243-00

PATIENT
  Sex: Female

DRUGS (1)
  1. EPILIM [Suspect]
     Active Substance: VALPROATE SODIUM
     Indication: MATERNAL EXPOSURE TIMING UNSPECIFIED
     Route: 064

REACTIONS (14)
  - Bone disorder [Unknown]
  - Fatigue [Unknown]
  - Foetal exposure during pregnancy [Unknown]
  - Abnormal behaviour [Unknown]
  - Sensory level abnormal [Unknown]
  - Social (pragmatic) communication disorder [Unknown]
  - Autism spectrum disorder [Unknown]
  - Foetal anticonvulsant syndrome [Not Recovered/Not Resolved]
  - Dysmorphism [Unknown]
  - Hypermobility syndrome [Unknown]
  - Osteogenesis imperfecta [Unknown]
  - Epilepsy [Unknown]
  - Anxiety [Unknown]
  - Coordination abnormal [Unknown]
